FAERS Safety Report 4549833-1 (Version None)
Quarter: 2004Q4

REPORT INFORMATION
  Report Type: 
  Country: None (occurrence: None)
  Receive Date: 20041227
  Receipt Date: 20041027
  Transmission Date: 20050328
  Serious: No
  Sender: FDA-Public Use
  Company Number: 04P-163-0278899-00

PATIENT
  Age: 74 Year
  Sex: Female
  Weight: 54.4316 kg

DRUGS (8)
  1. HUMIRA [Suspect]
     Indication: RHEUMATOID ARTHRITIS
     Dosage: 40 MG, 1 IN 2 WK, SUBCUTANEOUS
     Route: 058
     Dates: start: 20040801
  2. LEFLUNOMIDE [Concomitant]
  3. IBUPROFEN [Concomitant]
  4. RISEDRONATE SODIUM [Concomitant]
  5. MULTI-VITAMINS [Concomitant]
  6. LEVOTHYROXINE SODIUM [Concomitant]
  7. RANITIDINE [Concomitant]
  8. CALCIUM CARBONATE [Concomitant]

REACTIONS (1)
  - OEDEMA PERIPHERAL [None]
